FAERS Safety Report 6654890 (Version 6)
Quarter: 2019Q4

REPORT INFORMATION
  Report Type: Spontaneous
  Country: FR (occurrence: FR)
  Receive Date: 20080602
  Receipt Date: 20191028
  Transmission Date: 20200122
  Serious: Yes (Life-Threatening, Hospitalization, Other)
  Sender: FDA-Public Use
  Company Number: FR-SANOFI-SYNTHELABO-A02200801544

PATIENT
  Age: 66 Year
  Sex: Male
  Weight: 82 kg

DRUGS (14)
  1. ELOXATIN [Suspect]
     Active Substance: OXALIPLATIN
     Indication: TRANSITIONAL CELL CARCINOMA
     Dosage: 200 MG/M2, QCY (100MG/M2 (200 MG INFUSION ON DAY 1), ON)
     Route: 041
     Dates: start: 20080317, end: 20080317
  2. INEXIUM [ESOMEPRAZOLE MAGNESIUM] [Concomitant]
     Active Substance: ESOMEPRAZOLE MAGNESIUM
     Dosage: UNK UNK,UNK
     Route: 065
  3. ELOXATIN [Suspect]
     Active Substance: OXALIPLATIN
     Dosage: 200 MG/M2, QCY (100MG/M2 (200 MG INFUSION ON DAY 1),)
     Route: 041
     Dates: start: 20080429, end: 20080429
  4. GEMCITABINE HYDROCHLORIDE. [Suspect]
     Active Substance: GEMCITABINE HYDROCHLORIDE
     Dosage: 2 G, QCY (1000MG/M2 (2000 MG/M2 INFUSION)
     Route: 042
     Dates: start: 20080507, end: 20080507
  5. TRANXENE [Concomitant]
     Active Substance: CLORAZEPATE DIPOTASSIUM
     Indication: PROPHYLAXIS OF NAUSEA AND VOMITING
  6. TRANXENE [Concomitant]
     Active Substance: CLORAZEPATE DIPOTASSIUM
     Indication: VOMITING
     Dosage: 10 MG, QD
     Route: 042
     Dates: start: 20080507, end: 20080507
  7. DEFIBROTIDE [Concomitant]
     Active Substance: DEFIBROTIDE (BOVINE)
     Route: 065
  8. GEMCITABINE HYDROCHLORIDE. [Suspect]
     Active Substance: GEMCITABINE HYDROCHLORIDE
     Indication: TRANSITIONAL CELL CARCINOMA
     Dosage: 2 G, QCY (1000MG/M2 (2000 MG/M2 INFUSION))
     Route: 042
     Dates: start: 20080317, end: 20080317
  9. VOGALENE [Concomitant]
     Active Substance: METOPIMAZINE
     Indication: VOMITING
     Dosage: 3 MG, QD
     Route: 048
     Dates: start: 20080430, end: 20080506
  10. ZOPHREN [ONDANSETRON] [Concomitant]
     Active Substance: ONDANSETRON
     Indication: PROPHYLAXIS OF NAUSEA AND VOMITING
     Dosage: 8 MG, QD (8 MG, DAILY (1/D))
     Route: 042
     Dates: start: 20080507, end: 20080507
  11. THERALENE [Concomitant]
     Active Substance: TRIMEPRAZINE
     Dosage: UNK UNK,UNK
     Route: 065
  12. VOGALENE [Concomitant]
     Active Substance: METOPIMAZINE
     Indication: PROPHYLAXIS OF NAUSEA AND VOMITING
  13. SOLU-MEDROL [Concomitant]
     Active Substance: METHYLPREDNISOLONE SODIUM SUCCINATE
     Indication: PROPHYLAXIS OF NAUSEA AND VOMITING
     Dosage: 40 MG, QD
     Route: 042
     Dates: start: 20080507, end: 20080507
  14. PERIDYS [Concomitant]
     Active Substance: DOMPERIDONE
     Indication: PROPHYLAXIS OF NAUSEA AND VOMITING
     Dosage: 45 MG, QD (15 MG, 3/D)
     Route: 048
     Dates: start: 20080507, end: 20080508

REACTIONS (15)
  - Disseminated intravascular coagulation [Recovered/Resolved]
  - Acute hepatic failure [Recovered/Resolved]
  - Microcytic anaemia [Recovered/Resolved]
  - Venoocclusive liver disease [Recovered/Resolved]
  - Ascites [Recovered/Resolved with Sequelae]
  - Jaundice [Recovered/Resolved]
  - Renal failure [Recovered/Resolved]
  - Cholecystitis [Recovered/Resolved]
  - Retrograde portal vein flow [Recovered/Resolved]
  - Hepatic fibrosis [Recovered/Resolved]
  - Venoocclusive disease [Recovered/Resolved]
  - Hepatorenal syndrome [Recovered/Resolved with Sequelae]
  - Acute kidney injury [Recovered/Resolved]
  - Thrombocytopenia [Recovered/Resolved]
  - Inflammation [Recovered/Resolved]

NARRATIVE: CASE EVENT DATE: 2008
